FAERS Safety Report 18821939 (Version 1)
Quarter: 2021Q1

REPORT INFORMATION
  Report Type: Report from Study
  Country: US (occurrence: US)
  Receive Date: 20210202
  Receipt Date: 20210202
  Transmission Date: 20210419
  Serious: Yes (Other)
  Sender: FDA-Public Use
  Company Number: US-ASTELLAS-2021US003584

PATIENT
  Age: 90 Year
  Sex: Male

DRUGS (3)
  1. ASG?22CE [Suspect]
     Active Substance: ENFORTUMAB VEDOTIN
     Dosage: LOW DOSE, UNKNOWN FREQ.
     Route: 065
  2. PEMBROLIZUMAB. [Concomitant]
     Active Substance: PEMBROLIZUMAB
     Indication: TRANSITIONAL CELL CARCINOMA URETHRA
     Dosage: UNK UNK, UNKNOWN FREQ.
     Route: 065
  3. ASG?22CE [Suspect]
     Active Substance: ENFORTUMAB VEDOTIN
     Indication: TRANSITIONAL CELL CARCINOMA URETHRA
     Dosage: UNK, UNKNOWN FREQ.
     Route: 065

REACTIONS (6)
  - Pruritus [Recovering/Resolving]
  - Rash [Recovering/Resolving]
  - Pneumonia [Unknown]
  - Skin toxicity [Recovering/Resolving]
  - Dry eye [Unknown]
  - Cardiac failure congestive [Unknown]
